FAERS Safety Report 5205763-3 (Version None)
Quarter: 2007Q1

REPORT INFORMATION
  Report Type: 
  Country: None (occurrence: None)
  Receive Date: 20070111
  Receipt Date: 20070104
  Transmission Date: 20070707
  Serious: Yes (Death)
  Sender: FDA-Public Use
  Company Number: GBWYE343926OCT06

PATIENT
  Sex: Female

DRUGS (2)
  1. ENBREL [Suspect]
     Indication: PSORIASIS
     Route: 058
     Dates: start: 20060201, end: 20060901
  2. ENBREL [Suspect]
     Route: 058
     Dates: start: 20061001

REACTIONS (3)
  - RASH [None]
  - SUDDEN CARDIAC DEATH [None]
  - URINARY TRACT INFECTION [None]
